FAERS Safety Report 16221724 (Version 1)
Quarter: 2019Q2

REPORT INFORMATION
  Report Type: Spontaneous
  Country: GB (occurrence: GB)
  Receive Date: 20190422
  Receipt Date: 20190422
  Transmission Date: 20190711
  Serious: Yes (Life-Threatening, Other)
  Sender: FDA-Public Use
  Company Number: GB-MICRO LABS LIMITED-ML2019-00930

PATIENT
  Age: 87 Year
  Sex: Female

DRUGS (15)
  1. FERROUS SULFATE. [Concomitant]
     Active Substance: FERROUS SULFATE
     Dates: start: 20180713
  2. AMOXICILLIN/CLAVULANIC ACID [Suspect]
     Active Substance: AMOXICILLIN\CLAVULANIC ACID
     Dosage: 250MG/125MG
     Dates: start: 20180919, end: 20180921
  3. LANSOPRAZOLE. [Concomitant]
     Active Substance: LANSOPRAZOLE
     Dates: start: 20180713
  4. SOLIFENACIN [Concomitant]
     Active Substance: SOLIFENACIN
     Dosage: MORNING
     Dates: start: 20180713
  5. PREGABALIN. [Concomitant]
     Active Substance: PREGABALIN
     Dates: start: 20180713
  6. BECLOMETASONE [Concomitant]
     Active Substance: BECLOMETHASONE DIPROPIONATE
     Dosage: PUFF INTO EACH NOSTRIL
     Dates: start: 20180810
  7. FULTIUM-D3 [Concomitant]
     Active Substance: CHOLECALCIFEROL
     Dates: start: 20180711, end: 20181130
  8. NITROFURANTOIN. [Concomitant]
     Active Substance: NITROFURANTOIN
     Dates: start: 20180809
  9. CLARITHROMYCIN. [Concomitant]
     Active Substance: CLARITHROMYCIN
     Dates: start: 20180924
  10. CODEINE [Concomitant]
     Active Substance: CODEINE
     Dosage: FOUR TIMES A DAY, MAY BE TAKEN WITH PARACETMOL
     Dates: start: 20180716
  11. CASSIA (SENNA ALEXANDRINA) [Concomitant]
     Active Substance: HERBALS\SENNOSIDES
     Dosage: NIGHT
     Dates: start: 20180713
  12. CLOMIPRAMINE [Concomitant]
     Active Substance: CLOMIPRAMINE
     Dates: start: 20180713
  13. NAPROXEN. [Concomitant]
     Active Substance: NAPROXEN
     Dates: start: 20180723
  14. PARACETAMOL [Concomitant]
     Active Substance: ACETAMINOPHEN
     Dosage: 1 TO 2 UP TO FOUR TIMES DAILY
     Dates: start: 20180831
  15. TRIMETHOPRIM. [Concomitant]
     Active Substance: TRIMETHOPRIM
     Dates: start: 20180628

REACTIONS (2)
  - Lip swelling [Recovered/Resolved]
  - Oral mucosal discolouration [Recovering/Resolving]

NARRATIVE: CASE EVENT DATE: 20180921
